FAERS Safety Report 16168512 (Version 1)
Quarter: 2019Q2

REPORT INFORMATION
  Report Type: Report from Study
  Country: None (occurrence: BR)
  Receive Date: 20190408
  Receipt Date: 20190408
  Transmission Date: 20190711
  Serious: Yes (Other)
  Sender: FDA-Public Use
  Company Number: BR-ABBVIE-19K-020-2732970-00

PATIENT
  Age: 17 Year
  Sex: Male

DRUGS (1)
  1. HUMIRA [Suspect]
     Active Substance: ADALIMUMAB
     Indication: ANKYLOSING SPONDYLITIS
     Route: 058
     Dates: start: 20180928, end: 20190205

REACTIONS (6)
  - Injection site mass [Recovered/Resolved]
  - Pruritus allergic [Recovered/Resolved]
  - Injection site mass [Unknown]
  - Allergic respiratory symptom [Unknown]
  - Hypersensitivity [Unknown]
  - Burning sensation [Recovered/Resolved]

NARRATIVE: CASE EVENT DATE: 20180928
